FAERS Safety Report 12322775 (Version 6)
Quarter: 2017Q4

REPORT INFORMATION
  Report Type: Spontaneous
  Country: DE (occurrence: DE)
  Receive Date: 20160502
  Receipt Date: 20171019
  Transmission Date: 20180320
  Serious: Yes (Other)
  Sender: FDA-Public Use
  Company Number: DE-ABBVIE-16P-062-1617428-00

PATIENT
  Age: 51 Year
  Sex: Male

DRUGS (6)
  1. NEBIDO [Suspect]
     Active Substance: TESTOSTERONE UNDECANOATE
     Indication: OSTEOPOROSIS
     Route: 065
  2. TESTOTOP [Suspect]
     Active Substance: TESTOSTERONE
     Indication: ANDROGEN DEFICIENCY
     Route: 065
     Dates: end: 2015
  3. TESTOTOP [Suspect]
     Active Substance: TESTOSTERONE
     Indication: OSTEOPOROSIS
  4. TESTOGEL [Suspect]
     Active Substance: TESTOSTERONE
     Indication: OSTEOPOROSIS
     Route: 062
     Dates: start: 20170701
  5. TESTOGEL [Suspect]
     Active Substance: TESTOSTERONE
     Indication: ANDROGEN DEFICIENCY
     Route: 065
     Dates: start: 2010, end: 2015
  6. NEBIDO [Suspect]
     Active Substance: TESTOSTERONE UNDECANOATE
     Indication: ANDROGEN DEFICIENCY
     Route: 065
     Dates: start: 2010

REACTIONS (19)
  - Seizure [Recovered/Resolved]
  - Meningioma [Unknown]
  - Product use issue [Unknown]
  - Syncope [Recovered/Resolved]
  - Inappropriate schedule of drug administration [Unknown]
  - Cardiovascular disorder [Not Recovered/Not Resolved]
  - Epilepsy [Not Recovered/Not Resolved]
  - Seizure [Recovered/Resolved]
  - Epilepsy [Recovered/Resolved]
  - Hepatic enzyme increased [Recovered/Resolved]
  - Arrhythmia [Recovered/Resolved]
  - Head injury [Recovered/Resolved]
  - Blood pressure increased [Unknown]
  - Flushing [Not Recovered/Not Resolved]
  - Application site acne [Not Recovered/Not Resolved]
  - Fall [Recovered/Resolved]
  - Hypertension [Recovered/Resolved]
  - Rosacea [Not Recovered/Not Resolved]
  - Head discomfort [Unknown]

NARRATIVE: CASE EVENT DATE: 2010
